FAERS Safety Report 23461673 (Version 1)
Quarter: 2024Q1

REPORT INFORMATION
  Report Type: Spontaneous
  Country: US (occurrence: US)
  Receive Date: 20240131
  Receipt Date: 20240131
  Transmission Date: 20240410
  Serious: No
  Sender: FDA-Public Use
  Company Number: US-BIOVITRUM-2024-US-001268

PATIENT
  Age: 60 Year
  Sex: Female

DRUGS (1)
  1. KINERET [Suspect]
     Active Substance: ANAKINRA
     Indication: Rheumatoid arthritis
     Dosage: ONCE DAILY
     Route: 058
     Dates: start: 20240104

REACTIONS (8)
  - Injection site discolouration [Unknown]
  - Injection site pain [Unknown]
  - Injection site warmth [Unknown]
  - Localised infection [Unknown]
  - Injection site pruritus [Recovered/Resolved]
  - Injection site erythema [Unknown]
  - Injection site bruising [Unknown]
  - Product dose omission issue [Unknown]
